FAERS Safety Report 6463411-9 (Version None)
Quarter: 2009Q4

REPORT INFORMATION
  Report Type: 
  Country: None (occurrence: None)
  Receive Date: 20091201
  Receipt Date: 20090909
  Transmission Date: 20100525
  Serious: Yes (Other)
  Sender: FDA-Public Use
  Company Number: US-AMGEN-QUU361847

PATIENT
  Sex: Female
  Weight: 58.6 kg

DRUGS (2)
  1. ENBREL [Suspect]
     Indication: PSORIASIS
     Route: 058
     Dates: start: 20080229, end: 20090521
  2. DESVENLAFAXINE [Concomitant]

REACTIONS (8)
  - BASAL CELL CARCINOMA [None]
  - DEPRESSION [None]
  - FATIGUE [None]
  - MALIGNANT MELANOMA [None]
  - MOOD SWINGS [None]
  - PHOTODERMATOSIS [None]
  - VISUAL IMPAIRMENT [None]
  - WEIGHT DECREASED [None]
